FAERS Safety Report 8893648 (Version 1)
Quarter: 2012Q4

REPORT INFORMATION
  Report Type: 
  Country: KR (occurrence: KR)
  Receive Date: 20121108
  Receipt Date: 20121108
  Transmission Date: 20130627
  Serious: Yes (Other)
  Sender: FDA-Public Use
  Company Number: KR-SANOFI-AVENTIS-2012SA080434

PATIENT

DRUGS (3)
  1. DOCETAXEL [Suspect]
     Indication: SARCOMA
     Dosage: 35 mg/m2 over 60 min, on day 1 and 8 of 21 day cycle
     Route: 042
  2. GEMCITABINE [Suspect]
     Indication: SARCOMA
     Dosage: 1000 mg/m2 over 100 minute duration, on day 1 and 8 of 21 day cycle
     Route: 042
  3. DEXAMETHASONE [Concomitant]
     Dosage: 8-15 mg; administered 30 min before docetaxel
     Route: 042

REACTIONS (1)
  - Impaired gastric emptying [Unknown]
